APPROVED DRUG PRODUCT: EPINEPHRINE BITARTRATE IN 0.9% SODIUM CHLORIDE
Active Ingredient: EPINEPHRINE BITARTRATE
Strength: EQ 16MG BASE/250ML (EQ 64MCG BASE/ML)
Dosage Form/Route: SOLUTION;INTRAVENOUS
Application: N218475 | Product #001
Applicant: BAXTER HEALTHCARE CORP
Approved: Feb 28, 2025 | RLD: Yes | RS: Yes | Type: RX